FAERS Safety Report 6383541-X (Version None)
Quarter: 2009Q4

REPORT INFORMATION
  Report Type: 
  Country: None (occurrence: None)
  Receive Date: 20091001
  Receipt Date: 20090924
  Transmission Date: 20100525
  Serious: Yes (Other)
  Sender: FDA-Public Use
  Company Number: GB-ROCHE-658627

PATIENT
  Age: 82 Year
  Sex: Female

DRUGS (10)
  1. TAMIFLU [Suspect]
     Indication: DRUG USE FOR UNKNOWN INDICATION
     Route: 065
     Dates: start: 20090724, end: 20090729
  2. DILTIAZEM [Concomitant]
  3. ASPIRIN [Concomitant]
  4. BECONASE AQ [Concomitant]
  5. HYOSCINE HBR HYT [Concomitant]
  6. HYPROMELLOSE [Concomitant]
  7. DEXTRAN INJ [Concomitant]
  8. MAGNESIUM TRISILICATE MIXTURE [Concomitant]
  9. QVAR 40 [Concomitant]
  10. ALBUTEROL [Concomitant]

REACTIONS (1)
  - ANXIETY [None]
